FAERS Safety Report 9552712 (Version 1)
Quarter: 2013Q3

REPORT INFORMATION
  Report Type: Spontaneous
  Country: US (occurrence: US)
  Receive Date: 20130925
  Receipt Date: 20130925
  Transmission Date: 20140515
  Serious: No
  Sender: FDA-Public Use
  Company Number: US-PURDUE-USA-2012-0094366

PATIENT
  Age: 37 Year
  Sex: Female

DRUGS (6)
  1. MORPHINE SULFATE EXTENDED-RELEASE TABLETS (RHODES 74-862) [Suspect]
     Indication: FIBROMYALGIA
     Dosage: 30 MG, DAILY (MORNING)
     Route: 048
     Dates: start: 2009
  2. MORPHINE SULFATE EXTENDED-RELEASE TABLETS (RHODES 74-862) [Suspect]
     Indication: BACK PAIN
     Dosage: 15 MG, (IN THE AFTERNOON AND AT NIGHT)
     Route: 048
     Dates: start: 2006
  3. KLONOPIN [Concomitant]
     Indication: ANXIETY
     Dosage: 1 MG, BID
     Route: 048
  4. KLONOPIN [Concomitant]
     Indication: MUSCLE RELAXANT THERAPY
  5. TRAZODONE [Concomitant]
     Indication: INSOMNIA
     Dosage: 15 MG, HS
     Route: 048
  6. LORTAB                             /00607101/ [Concomitant]
     Indication: BREAKTHROUGH PAIN
     Dosage: 1 TABLET, TID
     Route: 048
     Dates: start: 2006

REACTIONS (3)
  - Pain [Unknown]
  - Drug effect delayed [Not Recovered/Not Resolved]
  - Drug effect decreased [Not Recovered/Not Resolved]
